FAERS Safety Report 25259969 (Version 6)
Quarter: 2025Q2

REPORT INFORMATION
  Report Type: Report from Study
  Country: JP (occurrence: JP)
  Receive Date: 20250501
  Receipt Date: 20250625
  Transmission Date: 20250716
  Serious: Yes (Hospitalization)
  Sender: UCB
  Company Number: JP-UCBJ-CD202505748UCBPHAPROD

PATIENT
  Age: 41 Year
  Sex: Female

DRUGS (2)
  1. ROZANOLIXIZUMAB [Suspect]
     Active Substance: ROZANOLIXIZUMAB
     Indication: Myasthenia gravis
     Dosage: UNK UNK, WEEKLY (QW)
     Route: 058
     Dates: start: 20250424, end: 20250530
  2. DIENOGEST [Concomitant]
     Active Substance: DIENOGEST
     Indication: Menstrual cycle management
     Route: 048

REACTIONS (6)
  - Physical deconditioning [Unknown]
  - Headache [Recovered/Resolved]
  - Salivary gland pain [Unknown]
  - Neck pain [Unknown]
  - Pyrexia [Recovered/Resolved]
  - Intermenstrual bleeding [Not Recovered/Not Resolved]

NARRATIVE: CASE EVENT DATE: 20250501
